FAERS Safety Report 5673289-9 (Version None)
Quarter: 2008Q1

REPORT INFORMATION
  Report Type: 
  Country: None (occurrence: None)
  Receive Date: 20080319
  Receipt Date: 20080307
  Transmission Date: 20080703
  Serious: Yes (Hospitalization)
  Sender: FDA-Public Use
  Company Number: US-ELI_LILLY_AND_COMPANY-US200712005257

PATIENT
  Sex: Female
  Weight: 49.887 kg

DRUGS (10)
  1. FORTEO [Suspect]
     Indication: OSTEOPOROSIS
     Dosage: 20 UG, DAILY (1/D)
     Dates: start: 20071001
  2. FORTEO [Suspect]
     Dosage: UNK, UNK
  3. FORTEO [Suspect]
     Dosage: UNK, UNK
     Dates: end: 20080125
  4. VERAPAMIL [Concomitant]
     Dosage: 240 MG, EACH MORNING
  5. VICODIN ES [Concomitant]
     Dosage: 750 MG, 4/D
  6. SOMA [Concomitant]
     Dosage: 350 MG, 4/D
  7. TOPROL-XL [Concomitant]
     Dosage: 25 MG, EACH MORNING
     Dates: end: 20071201
  8. CLARITIN [Concomitant]
     Dosage: 1 D/F, AS NEEDED
  9. PROTONIX [Concomitant]
     Dosage: 1 D/F, DAILY (1/D)
  10. AVELOX [Concomitant]
     Dosage: 400 MG, DAILY (1/D)
     Dates: start: 20071012, end: 20071017

REACTIONS (10)
  - ASTHMA [None]
  - BRONCHITIS [None]
  - CHRONIC OBSTRUCTIVE PULMONARY DISEASE [None]
  - FEAR [None]
  - HOSPITALISATION [None]
  - INCORRECT ROUTE OF DRUG ADMINISTRATION [None]
  - MALAISE [None]
  - PRESYNCOPE [None]
  - TACHYCARDIA [None]
  - VISUAL DISTURBANCE [None]
